FAERS Safety Report 25844714 (Version 2)
Quarter: 2025Q4

REPORT INFORMATION
  Report Type: Spontaneous
  Country: EU (occurrence: EU)
  Receive Date: 20250925
  Receipt Date: 20251016
  Transmission Date: 20260117
  Serious: Yes (Life-Threatening)
  Sender: CSL BEHRING
  Company Number: EU-BEH-2025219856

PATIENT
  Age: 30 Year
  Sex: Female

DRUGS (3)
  1. HUMAN IMMUNOGLOBULIN G [Suspect]
     Active Substance: HUMAN IMMUNOGLOBULIN G
     Indication: Haemophagocytic lymphohistiocytosis
     Dosage: 140 G (2 G/KG OVER 48 H)
     Route: 042
  2. METHYLPREDNISOLONE [Concomitant]
     Active Substance: METHYLPREDNISOLONE
     Indication: Haemophagocytic lymphohistiocytosis
     Dosage: 2 DAILY X 500 MG
  3. CYCLOPHOSPHAMIDE [Concomitant]
     Active Substance: CYCLOPHOSPHAMIDE
     Indication: Lupus pneumonitis
     Dosage: TWO PULSES OF 500 MG

REACTIONS (2)
  - Haemolytic anaemia [Recovered/Resolved]
  - Off label use [Unknown]
